FAERS Safety Report 5875500-8 (Version None)
Quarter: 2008Q3

REPORT INFORMATION
  Report Type: 
  Country: None (occurrence: None)
  Receive Date: 20080905
  Receipt Date: 20080829
  Transmission Date: 20090109
  Serious: Yes (Other)
  Sender: FDA-Public Use
  Company Number: CHPA2008US14491

PATIENT
  Age: 63 Year
  Sex: Female
  Weight: 90.7 kg

DRUGS (1)
  1. EXCEDRIN MIGRAINE (NCH) (CAFFEINE CITRATE, ACETYLSALICYLIC, ACID, ACET [Suspect]
     Indication: MIGRAINE
     Dosage: 2 DF, QD, ORAL
     Route: 048
     Dates: start: 20080827

REACTIONS (1)
  - BLOOD GLUCOSE INCREASED [None]
